FAERS Safety Report 5674580-2 (Version None)
Quarter: 2008Q2

REPORT INFORMATION
  Report Type: 
  Country: None (occurrence: None)
  Receive Date: 20080304
  Receipt Date: 20071019
  Transmission Date: 20081010
  Serious: Yes (Hospitalization)
  Sender: FDA-Public Use
  Company Number: WAES 0710USA05803

PATIENT
  Sex: Female

DRUGS (1)
  1. PRINIVIL [Suspect]
     Dosage: 40 MG/DAILY/PO
     Route: 048

REACTIONS (1)
  - ANGIOEDEMA [None]
